FAERS Safety Report 5130134-8 (Version None)
Quarter: 2006Q4

REPORT INFORMATION
  Report Type: 
  Country: None (occurrence: None)
  Receive Date: 20061013
  Receipt Date: 20061003
  Transmission Date: 20070319
  Serious: Yes (Hospitalization, Other)
  Sender: FDA-Public Use
  Company Number: US200608005124

PATIENT
  Age: 39 Year
  Sex: Male
  Weight: 59.9 kg

DRUGS (2)
  1. ZYPREXA [Suspect]
     Dosage: SEE IMAGE
     Dates: end: 20010601
  2. ZYPREXA [Suspect]
     Dosage: SEE IMAGE
     Dates: start: 19980101

REACTIONS (7)
  - DIABETES MELLITUS [None]
  - DIABETIC KETOACIDOSIS [None]
  - GASTRIC CANCER [None]
  - HEPATIC NEOPLASM MALIGNANT [None]
  - HYPERGLYCAEMIA [None]
  - METABOLIC DISORDER [None]
  - OESOPHAGEAL CARCINOMA [None]
